FAERS Safety Report 5037175-X (Version None)
Quarter: 2006Q2

REPORT INFORMATION
  Report Type: 
  Country: None (occurrence: None)
  Receive Date: 20060628
  Receipt Date: 20051229
  Transmission Date: 20061013
  Serious: Yes (Hospitalization, Other)
  Sender: FDA-Public Use
  Company Number: FR-BRISTOL-MYERS SQUIBB COMPANY-13232988

PATIENT
  Age: 71 Year
  Sex: Male

DRUGS (6)
  1. GLUCOPHAGE [Suspect]
     Indication: DIABETES MELLITUS NON-INSULIN-DEPENDENT
     Route: 048
     Dates: start: 20050915, end: 20051205
  2. NOVONORM [Suspect]
     Indication: DIABETES MELLITUS NON-INSULIN-DEPENDENT
     Route: 048
     Dates: start: 20050915, end: 20051014
  3. ASPIRIN [Concomitant]
     Route: 048
     Dates: end: 20060408
  4. TAHOR [Concomitant]
     Route: 048
     Dates: end: 20051205
  5. MOPRAL [Concomitant]
     Route: 048
  6. VASTAREL [Concomitant]
     Route: 048
     Dates: end: 20051205

REACTIONS (4)
  - POLYCYTHAEMIA VERA [None]
  - PRURITUS [None]
  - RASH [None]
  - SKIN LESION [None]
